FAERS Safety Report 17164383 (Version 3)
Quarter: 2020Q4

REPORT INFORMATION
  Report Type: Report from Study
  Country: FR (occurrence: FR)
  Receive Date: 20191217
  Receipt Date: 20201020
  Transmission Date: 20210113
  Serious: Yes (Hospitalization)
  Sender: FDA-Public Use
  Company Number: FR-EMD SERONO-E2B_90072916

PATIENT
  Age: 9 Year
  Sex: Female
  Weight: 23 kg

DRUGS (4)
  1. SAIZEN [Suspect]
     Active Substance: SOMATROPIN
     Indication: GROWTH RETARDATION
     Dosage: 0.0372 MG/KG/DAY
     Route: 058
     Dates: start: 20191129, end: 20191204
  2. SAIZEN [Suspect]
     Active Substance: SOMATROPIN
     Route: 058
     Dates: end: 202010
  3. SAIZEN [Suspect]
     Active Substance: SOMATROPIN
     Route: 058
     Dates: start: 202010
  4. SAIZEN [Suspect]
     Active Substance: SOMATROPIN
     Dosage: RESUMED
     Route: 058
     Dates: start: 201912

REACTIONS (4)
  - Gingivitis [Not Recovered/Not Resolved]
  - Contusion [Unknown]
  - Off label use [Unknown]
  - Headache [Not Recovered/Not Resolved]

NARRATIVE: CASE EVENT DATE: 2019
